FAERS Safety Report 13881415 (Version 1)
Quarter: 2017Q3

REPORT INFORMATION
  Report Type: Spontaneous
  Country: US (occurrence: US)
  Receive Date: 20170818
  Receipt Date: 20170818
  Transmission Date: 20171127
  Serious: No
  Sender: FDA-Public Use
  Company Number: US-PFIZER INC-2017355389

PATIENT
  Age: 45 Year
  Sex: Female

DRUGS (1)
  1. SULFASALAZINE. [Suspect]
     Active Substance: SULFASALAZINE
     Dosage: 1500 MG, 2X/DAY

REACTIONS (12)
  - Tenderness [Unknown]
  - Blood pressure abnormal [Unknown]
  - Swelling [Unknown]
  - Trigger finger [Unknown]
  - Arthralgia [Unknown]
  - Ear pain [Unknown]
  - Fatigue [Unknown]
  - Musculoskeletal stiffness [Unknown]
  - Upper respiratory tract infection [Unknown]
  - Ear congestion [Unknown]
  - Skin mass [Unknown]
  - Upper-airway cough syndrome [Unknown]
